FAERS Safety Report 15138858 (Version 1)
Quarter: 2018Q3

REPORT INFORMATION
  Report Type: Spontaneous
  Country: CA (occurrence: CA)
  Receive Date: 20180713
  Receipt Date: 20180713
  Transmission Date: 20181010
  Serious: Yes (Other)
  Sender: FDA-Public Use
  Company Number: CA-EMD SERONO-9034748

PATIENT
  Age: 7 Year
  Sex: Female

DRUGS (3)
  1. SAIZEN [Suspect]
     Active Substance: SOMATROPIN
     Indication: PRODUCT USED FOR UNKNOWN INDICATION
     Route: 058
  2. SAIZEN [Suspect]
     Active Substance: SOMATROPIN
     Route: 058
  3. SAIZEN [Suspect]
     Active Substance: SOMATROPIN
     Route: 058

REACTIONS (3)
  - Thrombosis [Recovered/Resolved]
  - Wrong schedule [Recovered/Resolved]
  - Drug intolerance [Recovered/Resolved]
